FAERS Safety Report 4837240-3 (Version None)
Quarter: 2005Q4

REPORT INFORMATION
  Report Type: 
  Country: None (occurrence: None)
  Receive Date: 20051122
  Receipt Date: 20051115
  Transmission Date: 20060501
  Serious: No
  Sender: FDA-Public Use
  Company Number: TPA2005A01504

PATIENT
  Sex: Female

DRUGS (4)
  1. ROZEREM [Suspect]
     Dosage: PER ORAL
     Route: 048
  2. TUSSIONEX (TUSSIONEX) [Concomitant]
  3. PREDNISONE [Concomitant]
  4. ALBUTEROL [Concomitant]

REACTIONS (1)
  - ANAPHYLACTIC REACTION [None]
